FAERS Safety Report 9857605 (Version 3)
Quarter: 2014Q1

REPORT INFORMATION
  Report Type: Report from Study
  Country: DE (occurrence: DE)
  Receive Date: 20140131
  Receipt Date: 20140224
  Transmission Date: 20141002
  Serious: Yes (Hospitalization)
  Sender: FDA-Public Use
  Company Number: DE-ROCHE-1342132

PATIENT
  Age: 75 Year
  Sex: Male

DRUGS (22)
  1. RITUXIMAB [Suspect]
     Indication: RHEUMATOID ARTHRITIS
     Route: 042
     Dates: start: 20070315
  2. RITUXIMAB [Suspect]
     Route: 042
     Dates: start: 20110321
  3. RITUXIMAB [Suspect]
     Route: 042
     Dates: start: 20070718
  4. RITUXIMAB [Suspect]
     Route: 042
     Dates: start: 20080724
  5. RITUXIMAB [Suspect]
     Route: 042
     Dates: start: 20091008
  6. RITUXIMAB [Suspect]
     Route: 042
     Dates: start: 20120321
  7. RITUXIMAB [Suspect]
     Route: 042
     Dates: start: 20070718
  8. RITUXIMAB [Suspect]
     Route: 042
     Dates: start: 20080724
  9. RITUXIMAB [Suspect]
     Route: 042
     Dates: start: 20091008
  10. SULFASALAZIN [Suspect]
     Indication: RHEUMATOID ARTHRITIS
     Route: 065
     Dates: start: 200703
  11. SULFASALAZIN [Suspect]
     Route: 065
  12. SULFASALAZIN [Suspect]
     Route: 065
  13. SULFASALAZIN [Suspect]
     Route: 065
  14. PREDNISOLON [Concomitant]
     Route: 065
  15. RANITIDIN [Concomitant]
  16. TAVEGIL [Concomitant]
  17. HCTZ [Concomitant]
     Route: 065
  18. PANTOZOL (GERMANY) [Concomitant]
  19. MOXONIDIN [Concomitant]
  20. RAMIPRIL [Concomitant]
  21. TAMSULOSIN [Concomitant]
  22. ASS [Concomitant]

REACTIONS (2)
  - Syncope [Recovered/Resolved]
  - Humerus fracture [Recovered/Resolved]
